FAERS Safety Report 7488354-3 (Version None)
Quarter: 2011Q2

REPORT INFORMATION
  Report Type: 
  Country: None (occurrence: None)
  Receive Date: 20110518
  Receipt Date: 20110509
  Transmission Date: 20111010
  Serious: Yes (Hospitalization)
  Sender: FDA-Public Use
  Company Number: US-ASTRAZENECA-2009UW03041

PATIENT
  Age: 64 Year
  Sex: Female

DRUGS (15)
  1. TOPROL-XL [Suspect]
     Dosage: 25 - 50 DAILY
     Route: 048
  2. CRESTOR [Suspect]
     Route: 048
     Dates: start: 20091001
  3. OXYCODONE HCL AND ACETAMINOPHEN [Concomitant]
  4. NEXIUM [Suspect]
     Route: 048
  5. CRESTOR [Suspect]
     Route: 048
     Dates: start: 20030101
  6. HYDROCHLOROTHIAZIDE [Concomitant]
     Dosage: 25-50 DAILY
  7. CRESTOR [Suspect]
     Route: 048
     Dates: start: 20061201
  8. LIPITOR [Concomitant]
  9. VITAMIN D [Concomitant]
  10. ASPIRIN [Concomitant]
  11. CRESTOR [Suspect]
     Dosage: 20MG ON TUESDAYS AND THURSDAYS
     Route: 048
     Dates: start: 20091001
  12. STATIN MEDS [Concomitant]
  13. OMEGA FATTY 3 [Concomitant]
  14. FIORICET [Concomitant]
  15. PLAVIX [Concomitant]

REACTIONS (11)
  - BRONCHITIS [None]
  - FALL [None]
  - JOINT INJURY [None]
  - RENAL IMPAIRMENT [None]
  - VIRAL INFECTION [None]
  - MIGRAINE [None]
  - PAIN [None]
  - MALAISE [None]
  - ASTHMA [None]
  - BLOOD PRESSURE INADEQUATELY CONTROLLED [None]
  - HEADACHE [None]
